FAERS Safety Report 10868615 (Version 1)
Quarter: 2015Q1

REPORT INFORMATION
  Report Type: Spontaneous
  Country: US (occurrence: None)
  Receive Date: 20150220
  Receipt Date: 20150220
  Transmission Date: 20150721
  Serious: Yes (Other)
  Sender: FDA-Public Use
  Company Number: None

PATIENT
  Age: 77 Year
  Sex: Female
  Weight: 76.2 kg

DRUGS (1)
  1. TRAZODONE [Suspect]
     Active Substance: TRAZODONE HYDROCHLORIDE
     Indication: SLEEP DISORDER
     Dosage: 2 TABLETS BEFORE BED
     Dates: start: 20150112, end: 20150114

REACTIONS (3)
  - Dyspepsia [None]
  - Throat irritation [None]
  - Product quality issue [None]

NARRATIVE: CASE EVENT DATE: 20130112
